FAERS Safety Report 5337149-5 (Version None)
Quarter: 2007Q2

REPORT INFORMATION
  Report Type: 
  Country: None (occurrence: None)
  Receive Date: 20070529
  Receipt Date: 20070517
  Transmission Date: 20071010
  Serious: Yes (Hospitalization, Other)
  Sender: FDA-Public Use
  Company Number: US-PFIZER INC-2006014999

PATIENT
  Sex: Female
  Weight: 77.1 kg

DRUGS (4)
  1. BEXTRA [Suspect]
     Route: 048
  2. ACETYLSALICYLIC ACID SRT [Concomitant]
  3. MELOXICAM [Concomitant]
  4. ACETAMINOPHEN [Concomitant]

REACTIONS (1)
  - CEREBROVASCULAR ACCIDENT [None]
